FAERS Safety Report 25404573 (Version 1)
Quarter: 2025Q2

REPORT INFORMATION
  Report Type: Spontaneous
  Country: DE (occurrence: DE)
  Receive Date: 20250606
  Receipt Date: 20250606
  Transmission Date: 20250716
  Serious: Yes (Other)
  Sender: NOVARTIS
  Company Number: DE-002147023-NVSC2025DE089798

PATIENT
  Sex: Female

DRUGS (1)
  1. KESIMPTA [Suspect]
     Active Substance: OFATUMUMAB
     Indication: Multiple sclerosis
     Route: 065
     Dates: start: 202406, end: 20250418

REACTIONS (5)
  - Gingivitis ulcerative [Recovering/Resolving]
  - Pain in jaw [Recovering/Resolving]
  - Noninfective gingivitis [Recovering/Resolving]
  - Pyrexia [Recovering/Resolving]
  - Ear pain [Recovering/Resolving]

NARRATIVE: CASE EVENT DATE: 20250401
